FAERS Safety Report 17103010 (Version 1)
Quarter: 2019Q4

REPORT INFORMATION
  Report Type: Spontaneous
  Country: US (occurrence: US)
  Receive Date: 20191202
  Receipt Date: 20191202
  Transmission Date: 20200122
  Serious: No
  Sender: FDA-Public Use
  Company Number: None

PATIENT
  Age: 31 Year
  Sex: Female
  Weight: 72 kg

DRUGS (3)
  1. NUVARING [Concomitant]
     Active Substance: ETHINYL ESTRADIOL\ETONOGESTREL
  2. FLUTICASONE PROPIONATE 50 MCG/ACT 1 SPRAY IN EACH NOSTRIL NASALLY ONCE [Suspect]
     Active Substance: FLUTICASONE PROPIONATE
     Dosage: ?          QUANTITY:1 SPRAY(S);?
     Route: 055
     Dates: start: 20191110, end: 20191120
  3. LEVOTHROXINE SODIUM [Suspect]
     Active Substance: LEVOTHYROXINE SODIUM

REACTIONS (3)
  - Pulmonary congestion [None]
  - Malaise [None]
  - Anosmia [None]

NARRATIVE: CASE EVENT DATE: 20191120
